FAERS Safety Report 4491568-8 (Version None)
Quarter: 2004Q4

REPORT INFORMATION
  Report Type: 
  Country: None (occurrence: None)
  Receive Date: 20041101
  Receipt Date: 20041025
  Transmission Date: 20050328
  Serious: Yes (Death)
  Sender: FDA-Public Use
  Company Number: A044-002-005157

PATIENT
  Age: 77 Year
  Sex: Female
  Weight: 44 kg

DRUGS (7)
  1. ARICEPT [Suspect]
     Indication: DEMENTIA ALZHEIMER'S TYPE
     Dosage: 10 MG, 1 IN 1 D, ORAL
     Route: 048
     Dates: start: 20040224, end: 20040529
  2. ATROVENT [Concomitant]
  3. VENTOLIN [Concomitant]
  4. CARTIA (ACETYLSALICYCLIC ACID) [Concomitant]
  5. COVERSYL (PERINDOPRIL) [Concomitant]
  6. DIGOXIN [Concomitant]
  7. PREDNISONE [Concomitant]

REACTIONS (3)
  - DYSPNOEA EXACERBATED [None]
  - GENERAL PHYSICAL HEALTH DETERIORATION [None]
  - WEIGHT DECREASED [None]
